FAERS Safety Report 10277077 (Version 2)
Quarter: 2014Q3

REPORT INFORMATION
  Report Type: Spontaneous
  Country: JP (occurrence: JP)
  Receive Date: 20140703
  Receipt Date: 20140714
  Transmission Date: 20150326
  Serious: Yes (Hospitalization)
  Sender: FDA-Public Use
  Company Number: JP-GLAXOSMITHKLINE-B1003771A

PATIENT
  Age: 58 Year
  Sex: Male

DRUGS (6)
  1. CYMBALTA [Concomitant]
     Active Substance: DULOXETINE HYDROCHLORIDE
     Dosage: 60MG PER DAY
     Route: 048
     Dates: end: 20140608
  2. LULLAN [Concomitant]
     Active Substance: PEROSPIRONE HYDROCHLORIDE
     Dosage: 4MG PER DAY
     Route: 048
     Dates: end: 20140608
  3. LANDSEN [Concomitant]
     Active Substance: CLONAZEPAM
     Dosage: 1MG TWICE PER DAY
     Route: 048
     Dates: end: 20140618
  4. SILECE [Concomitant]
     Active Substance: FLUNITRAZEPAM
     Dosage: 1MG PER DAY
     Route: 048
     Dates: end: 20140618
  5. LAMICTAL [Suspect]
     Active Substance: LAMOTRIGINE
     Indication: PRODUCT USED FOR UNKNOWN INDICATION
     Route: 048
     Dates: start: 20140608
  6. SEPAZON [Concomitant]
     Active Substance: CLOXAZOLAM
     Dosage: 2MG PER DAY
     Route: 048
     Dates: end: 20140618

REACTIONS (13)
  - Aspartate aminotransferase increased [Unknown]
  - Screaming [Unknown]
  - Agitation [Recovered/Resolved]
  - Altered state of consciousness [Recovered/Resolved]
  - Restlessness [Unknown]
  - C-reactive protein increased [Unknown]
  - Communication disorder [Recovered/Resolved]
  - Overdose [Unknown]
  - Suicide attempt [Unknown]
  - Wound [Unknown]
  - Depressed level of consciousness [Recovered/Resolved]
  - Blood creatine phosphokinase increased [Unknown]
  - Coma [Recovered/Resolved]

NARRATIVE: CASE EVENT DATE: 201406
